FAERS Safety Report 12215291 (Version 1)
Quarter: 2016Q1

REPORT INFORMATION
  Report Type: Spontaneous
  Country: SE (occurrence: SE)
  Receive Date: 20160328
  Receipt Date: 20160328
  Transmission Date: 20160526
  Serious: Yes (Other)
  Sender: FDA-Public Use
  Company Number: SE-JNJFOC-20140413876

PATIENT
  Age: 27 Year
  Sex: Female

DRUGS (2)
  1. REMICADE [Suspect]
     Active Substance: INFLIXIMAB
     Indication: PROCTITIS ULCERATIVE
     Dosage: 300 MG
     Route: 042
     Dates: start: 20100101, end: 20120229
  2. IMUREL [Concomitant]
     Active Substance: AZATHIOPRINE SODIUM
     Route: 065

REACTIONS (3)
  - Noninfective encephalitis [Not Recovered/Not Resolved]
  - Dizziness [Not Recovered/Not Resolved]
  - Hypoaesthesia [Not Recovered/Not Resolved]

NARRATIVE: CASE EVENT DATE: 2012
